FAERS Safety Report 20310199 (Version 1)
Quarter: 2022Q1

REPORT INFORMATION
  Report Type: Spontaneous
  Country: ES (occurrence: ES)
  Receive Date: 20220107
  Receipt Date: 20220107
  Transmission Date: 20220424
  Serious: Yes (Other)
  Sender: FDA-Public Use
  Company Number: None

PATIENT
  Age: 64 Year
  Sex: Female

DRUGS (7)
  1. VALACYCLOVIR HYDROCHLORIDE [Suspect]
     Active Substance: VALACYCLOVIR HYDROCHLORIDE
     Indication: Viral uveitis
     Dosage: 1000 MILLIGRAM DAILY;  VALACICLOVIR (2710A)
     Route: 048
     Dates: start: 20211214, end: 20211215
  2. HYDROPHEROL [Concomitant]
     Dosage: HIDROFEROL 0.266 MG SOFT CAPSULES
  3. RENAGEL [Concomitant]
     Active Substance: SEVELAMER HYDROCHLORIDE
     Dosage: RENAGEL 800 MG FILM-COATED TABLETS
  4. CETIRIZINE [Concomitant]
     Active Substance: CETIRIZINE HYDROCHLORIDE
     Dosage: CETIRIZINE 10 MG 20 TABLETS
  5. FOLIC ACID [Concomitant]
     Active Substance: FOLIC ACID
     Dosage: ACFOL 5 MG TABLETS, 28 TABLETS
  6. MONTELUKAST [Concomitant]
     Active Substance: MONTELUKAST SODIUM
     Dosage: MONTELUKAST 10 MG 28 TABLETS
  7. BISOPROLOL [Concomitant]
     Active Substance: BISOPROLOL
     Dosage: BISOPROLOL COR SANDOZ 1.25 MG FILM-COATED TABLETS EFG

REACTIONS (1)
  - Anterograde amnesia [Recovered/Resolved]

NARRATIVE: CASE EVENT DATE: 20211215
